FAERS Safety Report 4639689-0 (Version None)
Quarter: 2005Q2

REPORT INFORMATION
  Report Type: 
  Country: None (occurrence: None)
  Receive Date: 20050411
  Receipt Date: 20050329
  Transmission Date: 20051028
  Serious: Yes (Life-Threatening, Hospitalization)
  Sender: FDA-Public Use
  Company Number: THYM-10434

PATIENT
  Age: 41 Year
  Sex: Female
  Weight: 73.8 kg

DRUGS (22)
  1. THYMOGLOBULIN [Suspect]
     Indication: GRAFT VERSUS HOST DISEASE
     Dosage: 0.5 MG/KG ONCE IV
     Route: 042
     Dates: start: 20050215, end: 20050215
  2. THYMOGLOBULIN [Suspect]
     Indication: PROPHYLAXIS
     Dosage: 0.5 MG/KG ONCE IV
     Route: 042
     Dates: start: 20050215, end: 20050215
  3. THYMOGLOBULIN [Suspect]
     Indication: GRAFT VERSUS HOST DISEASE
     Dosage: 2.5 MG/KG ONCE IV
     Route: 042
     Dates: start: 20050216, end: 20050216
  4. THYMOGLOBULIN [Suspect]
     Indication: PROPHYLAXIS
     Dosage: 2.5 MG/KG ONCE IV
     Route: 042
     Dates: start: 20050216, end: 20050216
  5. THYMOGLOBULIN [Suspect]
     Indication: GRAFT VERSUS HOST DISEASE
     Dosage: 3 MG/KG QD IV
     Route: 042
     Dates: start: 20050217, end: 20050217
  6. THYMOGLOBULIN [Suspect]
     Indication: PROPHYLAXIS
     Dosage: 3 MG/KG QD IV
     Route: 042
     Dates: start: 20050217, end: 20050217
  7. FLUDARABINE PHOSPHATE [Suspect]
     Indication: BONE MARROW CONDITIONING REGIMEN
     Dosage: 56 MG QD IV
     Route: 042
     Dates: start: 20050209, end: 20050212
  8. FLUDARABINE PHOSPHATE [Suspect]
     Indication: STEM CELL TRANSPLANT
     Dosage: 56 MG QD IV
     Route: 042
     Dates: start: 20050209, end: 20050212
  9. BUSULFAN [Suspect]
     Indication: BONE MARROW CONDITIONING REGIMEN
     Dosage: 201 MG QD
     Dates: start: 20050213, end: 20050213
  10. BUSULFAN [Suspect]
     Indication: STEM CELL TRANSPLANT
     Dosage: 201 MG QD
     Dates: start: 20050213, end: 20050213
  11. BUSULFAN [Suspect]
     Indication: BONE MARROW CONDITIONING REGIMEN
     Dosage: 326 MG QD
     Dates: start: 20050214, end: 20050215
  12. BUSULFAN [Suspect]
     Indication: STEM CELL TRANSPLANT
     Dosage: 326 MG QD
     Dates: start: 20050214, end: 20050215
  13. BUSULFAN [Suspect]
     Indication: BONE MARROW CONDITIONING REGIMEN
     Dosage: 350 MG QD
     Dates: start: 20050216, end: 20050216
  14. BUSULFAN [Suspect]
     Indication: STEM CELL TRANSPLANT
     Dosage: 350 MG QD
     Dates: start: 20050216, end: 20050216
  15. METHOTREXATE [Suspect]
     Indication: GRAFT VERSUS HOST DISEASE
     Dosage: 19 MG QD IV
     Route: 042
     Dates: start: 20050220, end: 20050222
  16. METHOTREXATE [Suspect]
     Indication: PROPHYLAXIS
     Dosage: 19 MG QD IV
     Route: 042
     Dates: start: 20050220, end: 20050222
  17. METHOTREXATE [Suspect]
     Indication: GRAFT VERSUS HOST DISEASE
     Dosage: 19 MG QD IV
     Route: 042
     Dates: start: 20050222, end: 20050222
  18. METHOTREXATE [Suspect]
     Indication: PROPHYLAXIS
     Dosage: 19 MG QD IV
     Route: 042
     Dates: start: 20050222, end: 20050222
  19. METHOTREXATE [Suspect]
     Indication: GRAFT VERSUS HOST DISEASE
     Dosage: 19 MG QD IV
     Route: 042
     Dates: start: 20050225, end: 20050225
  20. METHOTREXATE [Suspect]
     Indication: PROPHYLAXIS
     Dosage: 19 MG QD IV
     Route: 042
     Dates: start: 20050225, end: 20050225
  21. METHOTREXATE [Suspect]
     Indication: GRAFT VERSUS HOST DISEASE
     Dosage: 19 MG QD IV
     Route: 042
     Dates: start: 20050302, end: 20050302
  22. METHOTREXATE [Suspect]
     Indication: PROPHYLAXIS
     Dosage: 19 MG QD IV
     Route: 042
     Dates: start: 20050302, end: 20050302

REACTIONS (12)
  - ALPHA HAEMOLYTIC STREPTOCOCCAL INFECTION [None]
  - ASPERGILLOSIS [None]
  - BLOOD CULTURE POSITIVE [None]
  - COMPUTERISED TOMOGRAM ABNORMAL [None]
  - CULTURE POSITIVE [None]
  - ENTEROCOCCAL INFECTION [None]
  - HAEMOPTYSIS [None]
  - LUNG CONSOLIDATION [None]
  - MUCOSAL INFLAMMATION [None]
  - PULMONARY ALVEOLAR HAEMORRHAGE [None]
  - RESPIRATORY DISTRESS [None]
  - THROMBOCYTOPENIA [None]
